FAERS Safety Report 13703425 (Version 1)
Quarter: 2017Q2

REPORT INFORMATION
  Report Type: Spontaneous
  Country: AU (occurrence: AU)
  Receive Date: 20170629
  Receipt Date: 20170629
  Transmission Date: 20170830
  Serious: Yes (Hospitalization)
  Sender: FDA-Public Use
  Company Number: AU-ELI_LILLY_AND_COMPANY-AU201706011793

PATIENT
  Age: 66 Year
  Sex: Male

DRUGS (7)
  1. MINOCYCLINE [Concomitant]
     Active Substance: MINOCYCLINE\MINOCYCLINE HYDROCHLORIDE
     Dosage: 100 MG, DAILY
     Dates: start: 20160510
  2. ERBITUX [Suspect]
     Active Substance: CETUXIMAB
     Indication: COLORECTAL CANCER METASTATIC
     Dosage: 500 MG/M2, UNKNOWN
     Route: 065
     Dates: start: 20160322
  3. ERBITUX [Suspect]
     Active Substance: CETUXIMAB
     Dosage: 250 MG/M2, 2/M
     Route: 065
     Dates: start: 20160510, end: 20160524
  4. ERBITUX [Suspect]
     Active Substance: CETUXIMAB
     Dosage: 250 MG/M2 (465 MG), 2/M
     Route: 065
     Dates: start: 201608
  5. MINOCYCLINE [Concomitant]
     Active Substance: MINOCYCLINE\MINOCYCLINE HYDROCHLORIDE
     Indication: PROPHYLAXIS
     Dosage: 50 MG, DAILY
     Dates: start: 201603
  6. IRINOTECAN [Suspect]
     Active Substance: IRINOTECAN
     Indication: COLORECTAL CANCER METASTATIC
     Dosage: UNK UNK, UNKNOWN
     Route: 065
     Dates: start: 201603
  7. ERBITUX [Suspect]
     Active Substance: CETUXIMAB
     Dosage: 200 MG/M2 (350 MG), 2/M
     Route: 065
     Dates: start: 20161025

REACTIONS (8)
  - Rash [Unknown]
  - Spinal column injury [Unknown]
  - Colitis [Unknown]
  - Off label use [Unknown]
  - Hernia repair [Unknown]
  - Gastrointestinal toxicity [Unknown]
  - Acute kidney injury [Unknown]
  - Delirium [Unknown]

NARRATIVE: CASE EVENT DATE: 2016
